FAERS Safety Report 17957165 (Version 2)
Quarter: 2022Q3

REPORT INFORMATION
  Report Type: Spontaneous
  Country: KR (occurrence: KR)
  Receive Date: 20200629
  Receipt Date: 20220906
  Transmission Date: 20221026
  Serious: Yes (Other)
  Sender: FDA-Public Use
  Company Number: KR-GLAXOSMITHKLINE-KR2020APC111563

PATIENT

DRUGS (1)
  1. AVODART [Suspect]
     Active Substance: DUTASTERIDE
     Indication: Product used for unknown indication
     Dosage: 0.5 MG
     Route: 048

REACTIONS (19)
  - Paralysis [Unknown]
  - Peripheral paralysis [Unknown]
  - Diplegia [Unknown]
  - Bradycardia [Unknown]
  - Cardiovascular disorder [Unknown]
  - Muscular weakness [Unknown]
  - Muscle atrophy [Unknown]
  - Asthenia [Unknown]
  - Muscle spasms [Unknown]
  - Heart rate decreased [Unknown]
  - Musculoskeletal stiffness [Unknown]
  - Asthenia [Unknown]
  - Condition aggravated [Unknown]
  - Dwarfism [Unknown]
  - Feeling abnormal [Unknown]
  - Cardiovascular disorder [Unknown]
  - Therapeutic response unexpected [Unknown]
  - Drug effective for unapproved indication [Unknown]
  - Product use in unapproved indication [Unknown]
